FAERS Safety Report 23233254 (Version 2)
Quarter: 2024Q1

REPORT INFORMATION
  Report Type: Spontaneous
  Country: CA (occurrence: CA)
  Receive Date: 20231128
  Receipt Date: 20240305
  Transmission Date: 20240410
  Serious: Yes (Death, Life-Threatening, Other)
  Sender: FDA-Public Use
  Company Number: CA-TAKEDA-2023TUS113962

PATIENT
  Age: 81 Year
  Sex: Male
  Weight: 68 kg

DRUGS (5)
  1. GAMMAGARD LIQUID [Suspect]
     Active Substance: HUMAN IMMUNOGLOBULIN G
     Indication: Polymyositis
     Dosage: 70 GRAM, QD
     Route: 065
  2. GAMMAGARD LIQUID [Suspect]
     Active Substance: HUMAN IMMUNOGLOBULIN G
     Indication: Respiratory disorder
     Dosage: 70 GRAM, QD
     Route: 042
     Dates: start: 2023, end: 2023
  3. GAMMAGARD LIQUID [Suspect]
     Active Substance: HUMAN IMMUNOGLOBULIN G
     Indication: Dysphagia
  4. MEROPENEM [Concomitant]
     Active Substance: MEROPENEM
     Indication: Atrial fibrillation
     Dosage: UNK
     Route: 042
  5. METOPROLOL [Concomitant]
     Active Substance: METOPROLOL
     Indication: Pneumonia
     Dosage: UNK
     Route: 065

REACTIONS (9)
  - Acute respiratory failure [Fatal]
  - Respiratory failure [Fatal]
  - Atrial fibrillation [Fatal]
  - Anaphylactic reaction [Fatal]
  - Dysarthria [Fatal]
  - Wheezing [Fatal]
  - Hypotension [Fatal]
  - Oxygen saturation decreased [Fatal]
  - Tachycardia [Fatal]

NARRATIVE: CASE EVENT DATE: 20230101
